FAERS Safety Report 4666189-4 (Version None)
Quarter: 2005Q2

REPORT INFORMATION
  Report Type: 
  Country: None (occurrence: None)
  Receive Date: 20050519
  Receipt Date: 20050503
  Transmission Date: 20051028
  Serious: Yes (Hospitalization, Other)
  Sender: FDA-Public Use
  Company Number: PHBS2005BR06478

PATIENT
  Age: 51 Year
  Sex: Male
  Weight: 104 kg

DRUGS (2)
  1. CATAFLAM [Suspect]
     Dosage: 50 MG, ONCE/SINGLE
     Route: 048
  2. CONOTRIL [Concomitant]

REACTIONS (7)
  - BLOOD PRESSURE DECREASED [None]
  - DIZZINESS [None]
  - DRUG HYPERSENSITIVITY [None]
  - LARYNGEAL OEDEMA [None]
  - PALLOR [None]
  - PRURITUS [None]
  - SYNCOPE [None]
